FAERS Safety Report 17141838 (Version 1)
Quarter: 2019Q4

REPORT INFORMATION
  Report Type: Spontaneous
  Country: DE (occurrence: DE)
  Receive Date: 20191211
  Receipt Date: 20191211
  Transmission Date: 20200122
  Serious: Yes (Other)
  Sender: FDA-Public Use
  Company Number: DE-MYLANLABS-2019M1122128

PATIENT
  Sex: Female

DRUGS (7)
  1. LEVONORGESTREL. [Suspect]
     Active Substance: LEVONORGESTREL
     Indication: CONTRACEPTION
     Dosage: UNK
  2. PARACETAMOL [Suspect]
     Active Substance: ACETAMINOPHEN
     Indication: MIGRAINE
     Dosage: 750 MILLIGRAM
  3. ETHINYLESTRADIOL [Suspect]
     Active Substance: ETHINYL ESTRADIOL
     Indication: CONTRACEPTION
     Dosage: UNK
  4. PARACETAMOL [Suspect]
     Active Substance: ACETAMINOPHEN
     Indication: PAIN
     Dosage: 500-1000 MG/D (AS NEEDED, 4000 IN TOTAL)
  5. TICK-BORNE ENCEPHALITIS VACCINE [Suspect]
     Active Substance: TICK-BORNE ENCEPHALITIS VACCINE
     Indication: PROPHYLAXIS
     Dosage: UNK
  6. INFLUENZA VACCINE INACT [Suspect]
     Active Substance: INFLUENZA VIRUS VACCINE
     Indication: INFLUENZA IMMUNISATION
     Dosage: UNK
  7. BUDESONIDE. [Suspect]
     Active Substance: BUDESONIDE
     Indication: ASTHMA

REACTIONS (3)
  - Maternal exposure during pregnancy [Recovered/Resolved]
  - Oligohydramnios [Unknown]
  - Live birth [Recovered/Resolved]
